FAERS Safety Report 9638057 (Version 3)
Quarter: 2013Q4

REPORT INFORMATION
  Report Type: Spontaneous
  Country: US (occurrence: US)
  Receive Date: 20131022
  Receipt Date: 20131206
  Transmission Date: 20140711
  Serious: Yes (Other)
  Sender: FDA-Public Use
  Company Number: US-PFIZER INC-2013297681

PATIENT
  Age: 17 Year
  Sex: Female

DRUGS (2)
  1. ADVIL [Suspect]
     Indication: ACNE
     Dosage: UNK
  2. TOBREX [Suspect]
     Indication: INJURY CORNEAL
     Dosage: UNK, QID
     Route: 047
     Dates: start: 20131007, end: 20131010

REACTIONS (8)
  - Off label use [Unknown]
  - Eye burns [Not Recovered/Not Resolved]
  - Visual acuity reduced [Recovering/Resolving]
  - Eye disorder [Unknown]
  - Eye penetration [Recovered/Resolved]
  - Injury corneal [Unknown]
  - Vision blurred [Unknown]
  - Eye pain [Unknown]
